FAERS Safety Report 6190556-3 (Version None)
Quarter: 2009Q2

REPORT INFORMATION
  Report Type: 
  Country: None (occurrence: None)
  Receive Date: 20090514
  Receipt Date: 20090504
  Transmission Date: 20091009
  Serious: Yes (Hospitalization, Other)
  Sender: FDA-Public Use
  Company Number: US-TEVA-193871USA

PATIENT
  Age: 85 Year
  Sex: Male

DRUGS (1)
  1. WARFARIN SODIUM TABLET 1MG, 2MG, 2.5MG, 3MG, 4MG, 5MG,6MG, 7.5MG, 10MG [Suspect]
     Route: 048

REACTIONS (2)
  - SMALL INTESTINAL HAEMORRHAGE [None]
  - SMALL INTESTINAL OBSTRUCTION [None]
